FAERS Safety Report 9178736 (Version 1)
Quarter: 2013Q1

REPORT INFORMATION
  Report Type: Spontaneous
  Country: US (occurrence: US)
  Receive Date: 20130321
  Receipt Date: 20130321
  Transmission Date: 20140127
  Serious: Yes (Other)
  Sender: FDA-Public Use
  Company Number: US-BAYER-2013-033092

PATIENT
  Age: 50 Year
  Sex: Female

DRUGS (15)
  1. YASMIN [Suspect]
  2. ACIPHEX [Concomitant]
     Dosage: UNK
     Dates: start: 20071010
  3. ACIPHEX [Concomitant]
     Dosage: UNK
     Dates: start: 20070808
  4. MULTIVITAMIN [Concomitant]
     Dosage: UNK
     Dates: start: 20071010
  5. DESIPRAMINE [Concomitant]
     Dosage: UNK
     Dates: start: 20071010
  6. CHROMAGEN FORTE [Concomitant]
     Dosage: UNK
     Dates: start: 20071010
  7. AZATHIOPRINE [Concomitant]
     Dosage: UNK
     Dates: start: 20071010
  8. ASACOL [Concomitant]
     Dosage: UNK
     Dates: start: 20071010
  9. ASACOL [Concomitant]
     Dosage: UNK
     Dates: start: 20070808
  10. AMBIEN [Concomitant]
     Dosage: UNK
     Dates: start: 20070808
  11. AMBIEN [Concomitant]
     Dosage: UNK
     Dates: start: 20071010
  12. VALTREX [Concomitant]
     Dosage: UNK UNK, PRN
     Dates: start: 20070808
  13. MACROBID [Concomitant]
     Dosage: UNK UNK, PRN
     Dates: start: 20070808
  14. ZOLOFT [Concomitant]
     Dosage: UNK
     Dates: start: 20070808
  15. MAXALT [Concomitant]
     Dosage: UNK UNK, PRN
     Dates: start: 20070808

REACTIONS (2)
  - Deep vein thrombosis [Recovered/Resolved]
  - Thrombophlebitis superficial [None]
